FAERS Safety Report 4292463-X (Version None)
Quarter: 2004Q1

REPORT INFORMATION
  Report Type: 
  Country: None (occurrence: None)
  Receive Date: 20040211
  Receipt Date: 20040211
  Transmission Date: 20041129
  Serious: Yes (Hospitalization)
  Sender: FDA-Public Use
  Company Number: None

PATIENT
  Sex: Female
  Weight: 45 kg

DRUGS (1)
  1. GEMCITABINE, 675 MG/M2 [Suspect]
     Indication: LEIOMYOSARCOMA
     Dosage: 985 MG IV 90 MINUTES
     Route: 042
     Dates: start: 20040116

REACTIONS (3)
  - GASTROINTESTINAL HAEMORRHAGE [None]
  - PYREXIA [None]
  - WHITE BLOOD CELL COUNT INCREASED [None]
